FAERS Safety Report 9014829 (Version 2)
Quarter: 2013Q1

REPORT INFORMATION
  Report Type: Spontaneous
  Country: US (occurrence: US)
  Receive Date: 20130116
  Receipt Date: 20130310
  Transmission Date: 20140127
  Serious: Yes (Other)
  Sender: FDA-Public Use
  Company Number: US-009507513-1203USA00126

PATIENT
  Sex: Female

DRUGS (2)
  1. ISENTRESS [Suspect]
     Dosage: 800 MG, DAILY
     Route: 048
  2. TRUVADA [Concomitant]

REACTIONS (2)
  - Abortion spontaneous [Unknown]
  - Exposure during pregnancy [Recovered/Resolved]
